FAERS Safety Report 24044556 (Version 1)
Quarter: 2024Q3

REPORT INFORMATION
  Report Type: Spontaneous
  Country: FR (occurrence: FR)
  Receive Date: 20240703
  Receipt Date: 20240703
  Transmission Date: 20241017
  Serious: Yes (Other)
  Sender: AUROBINDO
  Company Number: FR-AFSSAPS-PV2024000570

PATIENT
  Age: 76 Year
  Sex: Female

DRUGS (2)
  1. LEVOFLOXACIN [Suspect]
     Active Substance: LEVOFLOXACIN
     Indication: Post procedural infection
     Dosage: 750 MILLIGRAM, ONCE A DAY
     Route: 048
     Dates: start: 20240610, end: 20240612
  2. RIFAMPIN [Concomitant]
     Active Substance: RIFAMPIN
     Indication: Product used for unknown indication
     Dosage: UNK
     Route: 065

REACTIONS (1)
  - Deafness bilateral [Recovered/Resolved]

NARRATIVE: CASE EVENT DATE: 20240612
